FAERS Safety Report 6382923-X (Version None)
Quarter: 2009Q3

REPORT INFORMATION
  Report Type: 
  Country: None (occurrence: None)
  Receive Date: 20090930
  Receipt Date: 20090925
  Transmission Date: 20100115
  Serious: Yes (Life-Threatening, Hospitalization)
  Sender: FDA-Public Use
  Company Number: US-GILEAD-2009-0021583

PATIENT
  Sex: Male

DRUGS (3)
  1. TRUVADA [Suspect]
     Indication: HIV INFECTION
     Route: 048
     Dates: start: 20080312, end: 20090414
  2. ATAZANAVIR SULFATE [Concomitant]
     Route: 048
     Dates: start: 20060613, end: 20090414
  3. RITONAVIR [Concomitant]
     Route: 048
     Dates: start: 20060613, end: 20090414

REACTIONS (2)
  - HODGKIN'S DISEASE [None]
  - LYMPHADENOPATHY [None]
